FAERS Safety Report 17313923 (Version 19)
Quarter: 2025Q2

REPORT INFORMATION
  Report Type: Report from Study
  Country: US (occurrence: US)
  Receive Date: 20200124
  Receipt Date: 20250528
  Transmission Date: 20250717
  Serious: Yes (Other)
  Sender: TAKEDA
  Company Number: US-SHIRE-US202002370

PATIENT
  Age: 76 Year
  Sex: Female
  Weight: 67.574 kg

DRUGS (53)
  1. HUMAN IMMUNOGLOBULIN G [Suspect]
     Active Substance: HUMAN IMMUNOGLOBULIN G
     Indication: Immunodeficiency common variable
     Dosage: 16 GRAM, Q2WEEKS
     Dates: start: 20180702
  2. HUMAN IMMUNOGLOBULIN G [Suspect]
     Active Substance: HUMAN IMMUNOGLOBULIN G
     Dosage: 16 GRAM, Q2WEEKS
  3. OXYCODONE [Suspect]
     Active Substance: OXYCODONE
     Indication: Product used for unknown indication
  4. DIPHENHYDRAMINE [Concomitant]
     Active Substance: DIPHENHYDRAMINE
  5. EPINEPHRINE [Concomitant]
     Active Substance: EPINEPHRINE
  6. ALLEGRA ALLERGY [Concomitant]
     Active Substance: FEXOFENADINE HYDROCHLORIDE
  7. FLUTICASONE PROPIONATE [Concomitant]
     Active Substance: FLUTICASONE PROPIONATE
  8. Caltrate 600+D3 Plus minerals [Concomitant]
  9. DYMISTA [Concomitant]
     Active Substance: AZELASTINE HYDROCHLORIDE\FLUTICASONE PROPIONATE
  10. ZYRTEC [Concomitant]
     Active Substance: CETIRIZINE HYDROCHLORIDE
  11. ACETAMINOPHEN [Concomitant]
     Active Substance: ACETAMINOPHEN
  12. NEILMED SINUS RINSE [Concomitant]
     Active Substance: SODIUM BICARBONATE\SODIUM CHLORIDE
  13. VITAMIN E [Concomitant]
     Active Substance: .ALPHA.-TOCOPHEROL
  14. Caltrate + d plus [Concomitant]
  15. PROAIR HFA [Concomitant]
     Active Substance: ALBUTEROL SULFATE
  16. LIDOCAINE [Concomitant]
     Active Substance: LIDOCAINE
  17. COENZYME Q10 [Concomitant]
     Active Substance: DIETARY SUPPLEMENT\UBIDECARENONE
  18. VITAMIN A AND D [Concomitant]
     Active Substance: LANOLIN\PETROLATUM
  19. AZELASTINE [Concomitant]
     Active Substance: AZELASTINE
  20. ALLEGRA [Concomitant]
     Active Substance: FEXOFENADINE HYDROCHLORIDE
  21. FLUTICASONE [Concomitant]
     Active Substance: FLUTICASONE
  22. PROAIR HFA [Concomitant]
     Active Substance: ALBUTEROL SULFATE
  23. METAMUCIL [Concomitant]
     Active Substance: PLANTAGO SEED
  24. HYDRATING B5 [Concomitant]
  25. NEILMED NASADROPS [Concomitant]
  26. VITAMIN C [Concomitant]
     Active Substance: ASCORBIC ACID
  27. Glucosamine/chondroitin [Concomitant]
  28. REGULOID [Concomitant]
     Active Substance: PSYLLIUM HUSK
  29. ATORVASTATIN CALCIUM [Concomitant]
     Active Substance: ATORVASTATIN CALCIUM
  30. ASPIRIN [Concomitant]
     Active Substance: ASPIRIN
  31. SENOKOT-S [Concomitant]
     Active Substance: DOCUSATE SODIUM\SENNOSIDES
  32. LIDOCAINE AND PRILOCAINE [Concomitant]
     Active Substance: LIDOCAINE\PRILOCAINE
  33. ONDANSETRON [Concomitant]
     Active Substance: ONDANSETRON
  34. DIFLUCAN [Concomitant]
     Active Substance: FLUCONAZOLE
  35. ZOFRAN [Concomitant]
     Active Substance: ONDANSETRON HYDROCHLORIDE
  36. NEXIUM [Concomitant]
     Active Substance: ESOMEPRAZOLE MAGNESIUM
  37. SYMBICORT [Concomitant]
     Active Substance: BUDESONIDE\FORMOTEROL FUMARATE DIHYDRATE
  38. FUROSEMIDE [Concomitant]
     Active Substance: FUROSEMIDE
  39. LEVOTHYROXINE [Concomitant]
     Active Substance: LEVOTHYROXINE
  40. LINZESS [Concomitant]
     Active Substance: LINACLOTIDE
  41. METFORMIN [Concomitant]
     Active Substance: METFORMIN HYDROCHLORIDE
  42. GINGER [Concomitant]
     Active Substance: GINGER
  43. KLONOPIN [Concomitant]
     Active Substance: CLONAZEPAM
  44. METOPROLOL TARTRATE [Concomitant]
     Active Substance: METOPROLOL TARTRATE
  45. TRAZODONE [Concomitant]
     Active Substance: TRAZODONE HYDROCHLORIDE
  46. HYDROXYZINE [Concomitant]
     Active Substance: HYDROXYZINE HYDROCHLORIDE
  47. VIIBRYD [Concomitant]
     Active Substance: VILAZODONE HYDROCHLORIDE
  48. SINGULAIR [Concomitant]
     Active Substance: MONTELUKAST SODIUM
  49. PROAIR RESPICLICK [Concomitant]
     Active Substance: ALBUTEROL SULFATE
  50. SIMVASTATIN [Concomitant]
     Active Substance: SIMVASTATIN
  51. PERCOCET [Concomitant]
     Active Substance: ACETAMINOPHEN\OXYCODONE HYDROCHLORIDE
  52. DIPHENHYDRAMINE HYDROCHLORIDE [Concomitant]
     Active Substance: DIPHENHYDRAMINE HYDROCHLORIDE
  53. SENOKOT [Concomitant]
     Active Substance: SENNOSIDES

REACTIONS (14)
  - Lower respiratory tract infection [Unknown]
  - Pneumonia [Unknown]
  - Diverticulitis [Unknown]
  - Constipation [Unknown]
  - Nasopharyngitis [Recovered/Resolved]
  - Post procedural complication [Unknown]
  - COVID-19 [Unknown]
  - Bronchitis [Unknown]
  - Sinusitis [Unknown]
  - Infusion site pruritus [Unknown]
  - Erythema [Unknown]
  - Urticaria [Unknown]
  - Pruritus [Unknown]
  - Nausea [Unknown]

NARRATIVE: CASE EVENT DATE: 20231228
